FAERS Safety Report 25777764 (Version 9)
Quarter: 2025Q4

REPORT INFORMATION
  Report Type: Report from Study
  Country: JP (occurrence: JP)
  Receive Date: 20250909
  Receipt Date: 20251229
  Transmission Date: 20260118
  Serious: Yes (Other)
  Sender: UCB
  Company Number: JP-UCBJ-CD202507519UCBPHAPROD

PATIENT
  Age: 47 Year

DRUGS (1)
  1. ROZANOLIXIZUMAB [Suspect]
     Active Substance: ROZANOLIXIZUMAB
     Indication: Myasthenia gravis
     Dosage: UNK

REACTIONS (7)
  - Hyperventilation [Unknown]
  - Blister [Unknown]
  - Coronavirus infection [Recovering/Resolving]
  - Irritability [Unknown]
  - Therapeutic response decreased [Unknown]
  - Treatment noncompliance [Unknown]
  - Product dose omission issue [Unknown]
